FAERS Safety Report 7762785-6 (Version None)
Quarter: 2011Q3

REPORT INFORMATION
  Report Type: 
  Country: None (occurrence: None)
  Receive Date: 20110825
  Receipt Date: 20110630
  Transmission Date: 20111222
  Serious: No
  Sender: FDA-Public Use
  Company Number: 331189

PATIENT
  Age: 64 Year
  Sex: Male

DRUGS (1)
  1. VICTOZA INJECTION (LIRAGLUTIDE) SOLUTION FOR INJECTION, 6MG/ML [Suspect]
     Indication: TYPE 2 DIABETES MELLITUS
     Dosage: 1.2 MG, QD, SUBCUTANEOUS 1.8 MG , QD, SUBCUTANEOUS
     Route: 058

REACTIONS (2)
  - ASTHENIA [None]
  - ABDOMINAL PAIN UPPER [None]
